FAERS Safety Report 4610159-9 (Version None)
Quarter: 2005Q1

REPORT INFORMATION
  Report Type: 
  Country: None (occurrence: None)
  Receive Date: 20050316
  Receipt Date: 20050304
  Transmission Date: 20050727
  Serious: Yes (Hospitalization, Other)
  Sender: FDA-Public Use
  Company Number: 2005-02-1816

PATIENT
  Age: 78 Year
  Sex: Female

DRUGS (3)
  1. ASPIRIN [Suspect]
     Indication: ILL-DEFINED DISORDER
     Dosage: 325MG PER DAY
     Route: 048
     Dates: start: 20050220, end: 20050220
  2. INTEGRILIN [Suspect]
     Indication: ACUTE CORONARY SYNDROME
     Route: 042
     Dates: start: 20050220, end: 20050221
  3. ENOXAPARIN SODIUM [Suspect]
     Indication: ILL-DEFINED DISORDER
     Dosage: 1MGK PER DAY
     Route: 058
     Dates: start: 20050220, end: 20050220

REACTIONS (2)
  - PETECHIAE [None]
  - THROMBOCYTOPENIA [None]
